FAERS Safety Report 9350073 (Version 2)
Quarter: 2013Q3

REPORT INFORMATION
  Report Type: Spontaneous
  Country: FR (occurrence: FR)
  Receive Date: 20130616
  Receipt Date: 20130919
  Transmission Date: 20140515
  Serious: Yes (Hospitalization, Other)
  Sender: FDA-Public Use
  Company Number: FR-009507513-1306FRA002848

PATIENT
  Age: 37 Year
  Sex: Female

DRUGS (1)
  1. CYCLEANE 20 [Suspect]
     Indication: CONTRACEPTION
     Dosage: UNK
     Route: 048
     Dates: end: 20130320

REACTIONS (4)
  - Epilepsy [Recovered/Resolved with Sequelae]
  - Cerebral venous thrombosis [Recovered/Resolved with Sequelae]
  - Headache [Recovered/Resolved]
  - Cerebral infarction [Recovered/Resolved with Sequelae]
